FAERS Safety Report 17517388 (Version 2)
Quarter: 2020Q2

REPORT INFORMATION
  Report Type: Spontaneous
  Country: US (occurrence: US)
  Receive Date: 20200309
  Receipt Date: 20200401
  Transmission Date: 20200713
  Serious: Yes (Other)
  Sender: FDA-Public Use
  Company Number: US-SA-2020SA051590

PATIENT
  Age: 76 Year
  Sex: Female

DRUGS (2)
  1. LANTUS [Suspect]
     Active Substance: INSULIN GLARGINE
     Indication: TYPE 2 DIABETES MELLITUS
     Dosage: 42 IU, BID
     Route: 065
     Dates: start: 20140519
  2. LANTUS [Suspect]
     Active Substance: INSULIN GLARGINE
     Dosage: 42 IU, BID
     Route: 065
     Dates: start: 20200214

REACTIONS (7)
  - Therapeutic response decreased [Unknown]
  - Hypotension [Unknown]
  - Cardiac disorder [Unknown]
  - Inappropriate schedule of product administration [Unknown]
  - Diabetes mellitus inadequate control [Recovered/Resolved]
  - Muscle spasms [Unknown]
  - Weight decreased [Unknown]
